FAERS Safety Report 22133996 (Version 2)
Quarter: 2025Q2

REPORT INFORMATION
  Report Type: Spontaneous
  Country: ES (occurrence: ES)
  Receive Date: 20230324
  Receipt Date: 20250516
  Transmission Date: 20250716
  Serious: Yes (Other)
  Sender: AUROBINDO
  Company Number: ES-AstraZeneca-2023A054603

PATIENT
  Age: 67 Year
  Sex: Female

DRUGS (9)
  1. QUETIAPINE [Suspect]
     Active Substance: QUETIAPINE
     Indication: Anxiety disorder
     Route: 048
  2. CLONAZEPAM [Concomitant]
     Active Substance: CLONAZEPAM
     Indication: Product used for unknown indication
     Route: 065
  3. AGOMELATINE [Concomitant]
     Active Substance: AGOMELATINE
     Indication: Product used for unknown indication
     Route: 065
  4. VENLAFAXINE [Concomitant]
     Active Substance: VENLAFAXINE HYDROCHLORIDE
     Indication: Product used for unknown indication
     Route: 065
  5. MIRTAZAPINE [Concomitant]
     Active Substance: MIRTAZAPINE
     Indication: Product used for unknown indication
     Route: 065
  6. RISPERIDONE [Concomitant]
     Active Substance: RISPERIDONE
     Indication: Product used for unknown indication
     Dosage: 1.5 MILLIGRAM, ONCE A DAY
     Route: 065
  7. VORTIOXETINE [Concomitant]
     Active Substance: VORTIOXETINE
     Indication: Product used for unknown indication
     Route: 065
  8. BROMAZEPAM [Concomitant]
     Active Substance: BROMAZEPAM
     Indication: Product used for unknown indication
     Route: 065
  9. LORMETAZEPAM [Concomitant]
     Active Substance: LORMETAZEPAM
     Indication: Product used for unknown indication
     Route: 065

REACTIONS (1)
  - Anxiety [Unknown]
